FAERS Safety Report 7749410-5 (Version None)
Quarter: 2011Q3

REPORT INFORMATION
  Report Type: 
  Country: None (occurrence: None)
  Receive Date: 20110914
  Receipt Date: 20110912
  Transmission Date: 20111222
  Serious: Yes (Other)
  Sender: FDA-Public Use
  Company Number: CA-PFIZER INC-2011200668

PATIENT
  Age: 83 Year
  Sex: Female

DRUGS (3)
  1. CALCIUM [Concomitant]
     Indication: BONE DISORDER
     Dosage: 600 MG, 2X/DAY
     Route: 048
  2. CIPRODEX [Concomitant]
     Indication: EAR INFECTION
     Dosage: 4 GTT IN THE LEFT EAR, 2X/DAY
     Route: 001
     Dates: start: 20110827
  3. XALATAN [Suspect]
     Indication: GLAUCOMA
     Dosage: 1 GTT IN BOTH EYES, 1X/DAY
     Route: 047
     Dates: start: 20110101

REACTIONS (1)
  - EAR INFECTION [None]
